FAERS Safety Report 25789880 (Version 2)
Quarter: 2025Q4

REPORT INFORMATION
  Report Type: Spontaneous
  Country: US (occurrence: US)
  Receive Date: 20250911
  Receipt Date: 20251003
  Transmission Date: 20260117
  Serious: No
  Sender: LUPIN
  Company Number: US-LUPIN PHARMACEUTICALS INC.-2025-08007

PATIENT
  Age: 69 Year
  Weight: 92.971 kg

DRUGS (1)
  1. PREDNISOLONE ACETATE [Suspect]
     Active Substance: PREDNISOLONE ACETATE
     Indication: Corneal transplant
     Dosage: 1 DOSAGE FORM, QID

REACTIONS (4)
  - Product dose omission issue [Unknown]
  - Product container issue [Unknown]
  - Product packaging quantity issue [Unknown]
  - No adverse event [Unknown]
